FAERS Safety Report 9809149 (Version 2)
Quarter: 2014Q1

REPORT INFORMATION
  Report Type: Spontaneous
  Country: FR (occurrence: FR)
  Receive Date: 20140110
  Receipt Date: 20140110
  Transmission Date: 20141002
  Serious: Yes (Death, Other)
  Sender: FDA-Public Use
  Company Number: FR-ASTRAZENECA-2013SE93193

PATIENT
  Age: 24161 Day
  Sex: Male

DRUGS (14)
  1. INEXIUM [Suspect]
     Route: 042
     Dates: start: 20131028, end: 20131129
  2. CELLCEPT [Suspect]
     Route: 042
     Dates: start: 20131004, end: 20131126
  3. VFEND [Suspect]
     Route: 042
     Dates: start: 20131123
  4. CEFTAZIDIME PANPHARMA [Suspect]
     Route: 042
     Dates: start: 20131123, end: 20131127
  5. PROGRAF [Suspect]
     Route: 042
     Dates: start: 20131004, end: 20131126
  6. TOPALGIC [Suspect]
     Route: 042
     Dates: start: 20131118
  7. IXEL [Suspect]
     Route: 048
     Dates: start: 20131110
  8. PRIMPERAN [Suspect]
     Route: 042
     Dates: start: 20131028
  9. CORDARONE [Suspect]
     Route: 042
     Dates: start: 20131028
  10. FLAGYL [Suspect]
     Route: 042
     Dates: start: 20131124
  11. ACUPAN [Suspect]
     Route: 042
     Dates: start: 20131116
  12. CORTANCYL [Concomitant]
     Route: 065
     Dates: start: 20131004
  13. CALCIPARINE [Concomitant]
     Route: 065
     Dates: start: 20131114
  14. FORTUM [Concomitant]
     Route: 065
     Dates: start: 20131120

REACTIONS (3)
  - Thrombocytopenia [Not Recovered/Not Resolved]
  - Septic shock [Fatal]
  - Histiocytosis haematophagic [Unknown]
